FAERS Safety Report 4838762-1 (Version None)
Quarter: 2005Q4

REPORT INFORMATION
  Report Type: 
  Country: None (occurrence: None)
  Receive Date: 20051129
  Receipt Date: 20050927
  Transmission Date: 20060501
  Serious: No
  Sender: FDA-Public Use
  Company Number: US-GLAXOSMITHKLINE-A0576000A

PATIENT
  Age: 41 Year
  Sex: Male

DRUGS (1)
  1. COMMIT [Suspect]
     Dates: start: 20050926

REACTIONS (3)
  - ABNORMAL DREAMS [None]
  - BURNING SENSATION MUCOSAL [None]
  - THROAT TIGHTNESS [None]
